FAERS Safety Report 18536858 (Version 2)
Quarter: 2021Q1

REPORT INFORMATION
  Report Type: Spontaneous
  Country: US (occurrence: US)
  Receive Date: 20201124
  Receipt Date: 20210227
  Transmission Date: 20210419
  Serious: Yes (Life-Threatening, Hospitalization, Other)
  Sender: FDA-Public Use
  Company Number: US-DRREDDYS-USA/USA/20/0129340

PATIENT
  Age: 29 Year
  Sex: Male

DRUGS (1)
  1. OMEPRAZOLE. [Suspect]
     Active Substance: OMEPRAZOLE
     Indication: PRODUCT USED FOR UNKNOWN INDICATION
     Dosage: INTERMITTENTLY

REACTIONS (4)
  - Pancreatic abscess [Recovering/Resolving]
  - Biliary dilatation [Recovering/Resolving]
  - Pancreatitis necrotising [Recovering/Resolving]
  - Pancreatic pseudocyst [Unknown]
